FAERS Safety Report 5644107-X (Version None)
Quarter: 2008Q1

REPORT INFORMATION
  Report Type: 
  Country: None (occurrence: None)
  Receive Date: 20080226
  Receipt Date: 20080215
  Transmission Date: 20080703
  Serious: Yes (Hospitalization)
  Sender: FDA-Public Use
  Company Number: B0508548A

PATIENT
  Age: 76 Year
  Sex: Female
  Weight: 46.9019 kg

DRUGS (6)
  1. VALTREX [Suspect]
     Indication: HERPES VIRUS INFECTION
     Dosage: ORAL
     Route: 048
     Dates: start: 20071228, end: 20071230
  2. LOSARTAN POTASSIUM [Suspect]
     Dosage: ORAL
     Route: 048
     Dates: end: 20071230
  3. PAROXETINE HCL [Concomitant]
  4. SIMVASTATIN [Concomitant]
  5. CLOPIDOGREL BISULFATE [Concomitant]
  6. GALANTAMINE HYDROBROMIDE [Concomitant]

REACTIONS (10)
  - ACUTE CORONARY SYNDROME [None]
  - AGITATION [None]
  - BLOOD PRESSURE ABNORMAL [None]
  - DRUG INTERACTION [None]
  - DYSARTHRIA [None]
  - NEPHROPATHY TOXIC [None]
  - NEUROTOXICITY [None]
  - RENAL FAILURE ACUTE [None]
  - TONIC CLONIC MOVEMENTS [None]
  - VOMITING [None]
